FAERS Safety Report 9029449 (Version 4)
Quarter: 2013Q1

REPORT INFORMATION
  Report Type: Report from Study
  Country: DE (occurrence: DE)
  Receive Date: 20130125
  Receipt Date: 20130306
  Transmission Date: 20140127
  Serious: Yes (Hospitalization)
  Sender: FDA-Public Use
  Company Number: DE-AMGEN-DEUCT2013005137

PATIENT
  Age: 77 Year
  Sex: Female

DRUGS (3)
  1. PANITUMUMAB [Suspect]
     Indication: BILE DUCT CANCER
     Dosage: 9 MG/KG, UNK
     Dates: start: 20121122
  2. GEMCITABINE [Concomitant]
     Indication: BILE DUCT CANCER
     Dosage: 1000 MG/M2, UNK
     Dates: start: 20121122
  3. CISPLATIN [Concomitant]
     Indication: BILE DUCT CANCER
     Dosage: 25 MG/M2, UNK
     Dates: start: 20121122

REACTIONS (1)
  - Cholangitis [Recovered/Resolved with Sequelae]
